FAERS Safety Report 7795255-X (Version None)
Quarter: 2011Q3

REPORT INFORMATION
  Report Type: 
  Country: None (occurrence: None)
  Receive Date: 20110930
  Receipt Date: 20110923
  Transmission Date: 20111222
  Serious: Yes (Other)
  Sender: FDA-Public Use
  Company Number: AUR-APL-2011-05192

PATIENT
  Age: 44 Year
  Sex: Female
  Weight: 70 kg

DRUGS (4)
  1. NYSTAN (NYSTATIN) [Concomitant]
  2. PREDNISOLONE [Concomitant]
  3. FLUCONAZOLE [Suspect]
     Indication: PRODUCT USED FOR UNKNOWN INDICATION
     Dates: start: 20110913
  4. CANESTAN (CLOTRIMAZOLE) [Concomitant]

REACTIONS (2)
  - MOUTH ULCERATION [None]
  - OEDEMA MOUTH [None]
